FAERS Safety Report 23195956 (Version 1)
Quarter: 2023Q4

REPORT INFORMATION
  Report Type: Spontaneous
  Country: US (occurrence: None)
  Receive Date: 20231116
  Receipt Date: 20231116
  Transmission Date: 20240110
  Serious: No
  Sender: FDA-Public Use
  Company Number: None

PATIENT
  Sex: 0

DRUGS (1)
  1. GLYBURIDE [Suspect]
     Active Substance: GLYBURIDE

REACTIONS (2)
  - Blood glucose decreased [None]
  - Loss of consciousness [None]
